FAERS Safety Report 24065023 (Version 1)
Quarter: 2024Q3

REPORT INFORMATION
  Report Type: Spontaneous
  Country: US (occurrence: None)
  Receive Date: 20240708
  Receipt Date: 20240708
  Transmission Date: 20241017
  Serious: Yes (Hospitalization)
  Sender: Public
  Company Number: None

PATIENT
  Age: 44 Year
  Sex: Female

DRUGS (1)
  1. ORENCIA [Suspect]
     Active Substance: ABATACEPT
     Indication: Rheumatoid arthritis
     Dosage: 125 MG/ML EVERY 7 DAYS SUBCUTANEOUS
     Route: 058
     Dates: start: 20230822

REACTIONS (1)
  - CSF test abnormal [None]

NARRATIVE: CASE EVENT DATE: 20240315
